FAERS Safety Report 8583970-X (Version None)
Quarter: 2012Q3

REPORT INFORMATION
  Report Type: 
  Country: None (occurrence: None)
  Receive Date: 20120810
  Receipt Date: 20120803
  Transmission Date: 20120928
  Serious: No
  Sender: FDA-Public Use
  Company Number: JP-009507513-1207JPN001701

PATIENT

DRUGS (21)
  1. AMITRIPTYLINE HCL [Suspect]
     Indication: DEPRESSION
     Dosage: 10 MG, BID
     Route: 048
     Dates: start: 20120611, end: 20120621
  2. LASIX [Concomitant]
     Dosage: UNK
     Route: 048
     Dates: start: 20120417
  3. SPIRIVA [Concomitant]
     Dosage: UNK
     Route: 048
     Dates: start: 20110101
  4. UNIPHYL [Concomitant]
     Dosage: UNK
     Route: 048
     Dates: start: 20110101
  5. SINGULAIR [Concomitant]
     Dosage: UNK
     Route: 048
     Dates: start: 20120612
  6. CEFAZOLIN SODIUM [Concomitant]
     Dosage: UNK
     Route: 048
     Dates: start: 20110101, end: 20120611
  7. LANSOPRAZOLE [Concomitant]
     Dosage: UNK
     Route: 048
     Dates: start: 20120612
  8. TAMSULOSIN HYDROCHLORIDE [Concomitant]
     Dosage: UNK UNK, QD
     Route: 048
     Dates: start: 20110101
  9. GABAPENTIN [Concomitant]
     Dosage: UNK
     Route: 048
     Dates: start: 20120529
  10. OXYCONTIN [Concomitant]
     Dosage: UNK
     Route: 048
     Dates: start: 20110101
  11. EPARA [Concomitant]
     Dosage: UNK
     Route: 048
     Dates: start: 20110101, end: 20120611
  12. CANDESARTAN CILEXETIL [Concomitant]
     Dosage: UNK
     Route: 048
     Dates: start: 20110101, end: 20120611
  13. ALBUMIN TANNATE [Concomitant]
     Dosage: UNK
     Route: 048
     Dates: start: 20110101, end: 20120611
  14. SYMBICORT [Concomitant]
     Dosage: UNK
     Route: 055
     Dates: start: 20110101
  15. NOVAMIN (PROCHLORPERAZINE MESYLATE) [Concomitant]
     Dosage: UNK
     Route: 048
     Dates: start: 20120605, end: 20120612
  16. ALINAMIN F (FURSULTIAMINE HYDROCHLORIDE) [Concomitant]
     Dosage: UNK
     Route: 048
     Dates: start: 20110101, end: 20120611
  17. AMLODIPINE BESYLATE [Concomitant]
     Dosage: UNK
     Route: 048
     Dates: start: 20110101, end: 20120611
  18. LANSOPRAZOLE [Concomitant]
     Dosage: UNK UNK, QD
     Route: 048
     Dates: start: 20110101, end: 20120611
  19. CELEBREX [Concomitant]
     Dosage: UNK UNK, QD
     Route: 048
     Dates: start: 20120607
  20. MAGLAX (MAGNESIUM OXIDE) [Concomitant]
     Dosage: UNK
     Route: 048
     Dates: start: 20110101
  21. BETAMETHASONE [Concomitant]
     Dosage: UNK G, UNK
     Route: 048
     Dates: start: 20110101

REACTIONS (1)
  - DRUG ERUPTION [None]
